FAERS Safety Report 5245818-0 (Version None)
Quarter: 2007Q1

REPORT INFORMATION
  Report Type: 
  Country: None (occurrence: None)
  Receive Date: 20070216
  Receipt Date: 20070207
  Transmission Date: 20070707
  Serious: Yes (Hospitalization)
  Sender: FDA-Public Use
  Company Number: 2007BI002891

PATIENT
  Age: 40 Year
  Sex: Female

DRUGS (2)
  1. AVONEX [Suspect]
     Indication: MULTIPLE SCLEROSIS
     Dosage: 30 UG; QW; IV
     Route: 042
     Dates: start: 20060201
  2. AVONEX [Suspect]

REACTIONS (2)
  - HEPATOCELLULAR DAMAGE [None]
  - PROGRESSIVE MULTIPLE SCLEROSIS [None]
